FAERS Safety Report 8329721-5 (Version None)
Quarter: 2012Q2

REPORT INFORMATION
  Report Type: 
  Country: None (occurrence: None)
  Receive Date: 20120502
  Receipt Date: 20120427
  Transmission Date: 20120825
  Serious: Yes (Other)
  Sender: FDA-Public Use
  Company Number: JP-GLAXOSMITHKLINE-B0798829A

PATIENT
  Sex: Male

DRUGS (4)
  1. THEO-DUR [Concomitant]
     Dosage: 200MG PER DAY
     Route: 048
     Dates: start: 20110511
  2. MUCODYNE [Concomitant]
     Dosage: 1G PER DAY
     Route: 048
     Dates: start: 20110511
  3. FLUTICASONE PROPIONATE/SALMETEROL [Suspect]
     Indication: ASTHMA
     Dosage: 500MCG PER DAY
     Route: 055
     Dates: start: 20110511
  4. MONTELUKAST SODIUM [Concomitant]
     Dosage: 10MG PER DAY
     Route: 048
     Dates: start: 20110511

REACTIONS (3)
  - OSTEONECROSIS [None]
  - INFLAMMATION [None]
  - ARTHRALGIA [None]
